FAERS Safety Report 5622689-1 (Version None)
Quarter: 2008Q1

REPORT INFORMATION
  Report Type: 
  Country: None (occurrence: None)
  Receive Date: 20080212
  Receipt Date: 20080130
  Transmission Date: 20080703
  Serious: Yes (Death)
  Sender: FDA-Public Use
  Company Number: CA-BAYER-200812005NA

PATIENT
  Age: 47 Year
  Sex: Female
  Weight: 100 kg

DRUGS (4)
  1. MIRENA [Suspect]
     Indication: DYSFUNCTIONAL UTERINE BLEEDING
     Route: 015
  2. EFFEXOR [Concomitant]
  3. RANITIDINE [Concomitant]
  4. SENACOT [Concomitant]

REACTIONS (1)
  - PULMONARY EMBOLISM [None]
